FAERS Safety Report 10356799 (Version 1)
Quarter: 2014Q3

REPORT INFORMATION
  Report Type: Spontaneous
  Country: CA (occurrence: CA)
  Receive Date: 20140801
  Receipt Date: 20140801
  Transmission Date: 20150326
  Serious: Yes (Other)
  Sender: FDA-Public Use
  Company Number: CA-ROCHE-1443850

PATIENT
  Age: 54 Year
  Sex: Male

DRUGS (8)
  1. AMITRIPTYLINE [Concomitant]
     Active Substance: AMITRIPTYLINE
     Route: 065
  2. ELIDEL [Concomitant]
     Active Substance: PIMECROLIMUS
     Route: 065
  3. LORAZEPAM. [Concomitant]
     Active Substance: LORAZEPAM
  4. RIBAVIRIN. [Suspect]
     Active Substance: RIBAVIRIN
     Indication: PRODUCT USED FOR UNKNOWN INDICATION
     Route: 048
  5. ADVIL [Concomitant]
     Active Substance: IBUPROFEN
  6. VICTRELIS [Concomitant]
     Active Substance: BOCEPREVIR
     Route: 065
  7. PEGASYS [Suspect]
     Active Substance: PEGINTERFERON ALFA-2A
     Indication: PRODUCT USED FOR UNKNOWN INDICATION
     Route: 058
  8. OXYNEO [Concomitant]
     Active Substance: OXYCODONE
     Route: 065

REACTIONS (4)
  - Mobility decreased [Not Recovered/Not Resolved]
  - Dyspnoea [Not Recovered/Not Resolved]
  - Productive cough [Unknown]
  - Palpitations [Not Recovered/Not Resolved]
